FAERS Safety Report 9124846 (Version 1)
Quarter: 2013Q1

REPORT INFORMATION
  Report Type: Spontaneous
  Country: US (occurrence: US)
  Receive Date: 20130227
  Receipt Date: 20130227
  Transmission Date: 20140127
  Serious: Yes (Other)
  Sender: FDA-Public Use
  Company Number: US-PFIZER INC-2013070558

PATIENT
  Sex: Female
  Weight: 61.22 kg

DRUGS (7)
  1. SPIRONOLACTONE [Suspect]
     Indication: FLUID RETENTION
     Dosage: 25 MG, 2X/DAY
  2. SILDENAFIL CITRATE [Suspect]
     Indication: PULMONARY HYPERTENSION
     Dosage: 50 MG, 3X/DAY
  3. SILDENAFIL CITRATE [Suspect]
     Dosage: 50 MG, 2X/DAY
  4. CARVEDILOL [Concomitant]
     Indication: BLOOD PRESSURE ABNORMAL
     Dosage: 6.29 MG, 2X/DAY
  5. POTASSIUM CHLORIDE [Concomitant]
     Dosage: 10 MG, 2X/DAY
  6. WARFARIN [Concomitant]
     Indication: HEART RATE IRREGULAR
     Dosage: 5 MG, 1X/DAY
  7. CALCIUM [Concomitant]
     Dosage: UNK

REACTIONS (1)
  - Weight decreased [Unknown]
